FAERS Safety Report 22532303 (Version 6)
Quarter: 2025Q2

REPORT INFORMATION
  Report Type: Report from Study
  Country: KR (occurrence: KR)
  Receive Date: 20230607
  Receipt Date: 20250620
  Transmission Date: 20250716
  Serious: Yes (Other)
  Sender: MYLAN
  Company Number: KR-MYLANLABS-2023M1059477

PATIENT
  Sex: Female
  Weight: 55 kg

DRUGS (44)
  1. LYRICA [Suspect]
     Active Substance: PREGABALIN
     Indication: Paraesthesia
  2. LYRICA [Suspect]
     Active Substance: PREGABALIN
     Indication: Feeling hot
     Route: 048
  3. LYRICA [Suspect]
     Active Substance: PREGABALIN
     Route: 048
  4. LYRICA [Suspect]
     Active Substance: PREGABALIN
  5. LYRICA [Suspect]
     Active Substance: PREGABALIN
     Route: 065
  6. LYRICA [Suspect]
     Active Substance: PREGABALIN
     Route: 065
  7. LYRICA [Suspect]
     Active Substance: PREGABALIN
  8. LYRICA [Suspect]
     Active Substance: PREGABALIN
  9. LYRICA [Suspect]
     Active Substance: PREGABALIN
  10. LYRICA [Suspect]
     Active Substance: PREGABALIN
     Route: 048
  11. LYRICA [Suspect]
     Active Substance: PREGABALIN
  12. LYRICA [Suspect]
     Active Substance: PREGABALIN
     Route: 048
  13. EMPAGLIFLOZIN\METFORMIN HYDROCHLORIDE [Concomitant]
     Active Substance: EMPAGLIFLOZIN\METFORMIN HYDROCHLORIDE
     Indication: Diabetes mellitus
  14. EMPAGLIFLOZIN\METFORMIN HYDROCHLORIDE [Concomitant]
     Active Substance: EMPAGLIFLOZIN\METFORMIN HYDROCHLORIDE
     Route: 048
  15. EMPAGLIFLOZIN\METFORMIN HYDROCHLORIDE [Concomitant]
     Active Substance: EMPAGLIFLOZIN\METFORMIN HYDROCHLORIDE
     Route: 048
  16. EMPAGLIFLOZIN\METFORMIN HYDROCHLORIDE [Concomitant]
     Active Substance: EMPAGLIFLOZIN\METFORMIN HYDROCHLORIDE
  17. ACTOS [Concomitant]
     Active Substance: PIOGLITAZONE HYDROCHLORIDE
     Indication: Diabetes mellitus
     Dosage: 15 MILLIGRAM, QD
  18. ACTOS [Concomitant]
     Active Substance: PIOGLITAZONE HYDROCHLORIDE
     Dosage: 15 MILLIGRAM, QD
     Route: 048
  19. ACTOS [Concomitant]
     Active Substance: PIOGLITAZONE HYDROCHLORIDE
     Dosage: 15 MILLIGRAM, QD
     Route: 048
  20. ACTOS [Concomitant]
     Active Substance: PIOGLITAZONE HYDROCHLORIDE
     Dosage: 15 MILLIGRAM, QD
  21. Dexid [Concomitant]
     Indication: Diabetic neuropathy
     Dosage: 480 MILLIGRAM, QD
  22. Dexid [Concomitant]
     Dosage: 480 MILLIGRAM, QD
     Route: 048
  23. Dexid [Concomitant]
     Dosage: 480 MILLIGRAM, QD
     Route: 048
  24. Dexid [Concomitant]
     Dosage: 480 MILLIGRAM, QD
  25. Rovetin [Concomitant]
     Indication: Hyperlipidaemia
     Dosage: 10 MILLIGRAM, QD
  26. Rovetin [Concomitant]
     Dosage: 10 MILLIGRAM, QD
     Route: 048
  27. Rovetin [Concomitant]
     Dosage: 10 MILLIGRAM, QD
     Route: 048
  28. Rovetin [Concomitant]
     Dosage: 10 MILLIGRAM, QD
  29. CILOSTAZOL [Concomitant]
     Active Substance: CILOSTAZOL
     Dosage: 50 MILLIGRAM, BID
  30. CILOSTAZOL [Concomitant]
     Active Substance: CILOSTAZOL
     Dosage: 50 MILLIGRAM, BID
     Route: 048
  31. CILOSTAZOL [Concomitant]
     Active Substance: CILOSTAZOL
     Dosage: 50 MILLIGRAM, BID
     Route: 048
  32. CILOSTAZOL [Concomitant]
     Active Substance: CILOSTAZOL
     Dosage: 50 MILLIGRAM, BID
  33. LEVOTHYROXINE SODIUM [Concomitant]
     Active Substance: LEVOTHYROXINE SODIUM
     Dosage: 88 MICROGRAM, QD
  34. LEVOTHYROXINE SODIUM [Concomitant]
     Active Substance: LEVOTHYROXINE SODIUM
     Dosage: 88 MICROGRAM, QD
     Route: 048
  35. LEVOTHYROXINE SODIUM [Concomitant]
     Active Substance: LEVOTHYROXINE SODIUM
     Dosage: 88 MICROGRAM, QD
     Route: 048
  36. LEVOTHYROXINE SODIUM [Concomitant]
     Active Substance: LEVOTHYROXINE SODIUM
     Dosage: 88 MICROGRAM, QD
  37. Dicamax d plus [Concomitant]
  38. Dicamax d plus [Concomitant]
     Route: 048
  39. Dicamax d plus [Concomitant]
     Route: 048
  40. Dicamax d plus [Concomitant]
  41. INSULIN GLARGINE [Concomitant]
     Active Substance: INSULIN GLARGINE
     Indication: Diabetes mellitus
     Dosage: 22 INTERNATIONAL UNIT, QD
  42. INSULIN GLARGINE [Concomitant]
     Active Substance: INSULIN GLARGINE
     Dosage: 22 INTERNATIONAL UNIT, QD
     Route: 058
  43. INSULIN GLARGINE [Concomitant]
     Active Substance: INSULIN GLARGINE
     Dosage: 22 INTERNATIONAL UNIT, QD
     Route: 058
  44. INSULIN GLARGINE [Concomitant]
     Active Substance: INSULIN GLARGINE
     Dosage: 22 INTERNATIONAL UNIT, QD

REACTIONS (10)
  - Retinal oedema [Recovering/Resolving]
  - Glycosylated haemoglobin abnormal [Unknown]
  - Coronavirus infection [Unknown]
  - Weight decreased [Unknown]
  - Muscle spasms [Unknown]
  - Vomiting [Unknown]
  - Tremor [Unknown]
  - Feeling hot [Unknown]
  - Asthenia [Unknown]
  - Drug ineffective for unapproved indication [Unknown]
